FAERS Safety Report 10195450 (Version 3)
Quarter: 2014Q2

REPORT INFORMATION
  Report Type: Spontaneous
  Country: CN (occurrence: CN)
  Receive Date: 20140526
  Receipt Date: 20140602
  Transmission Date: 20141212
  Serious: Yes (Other)
  Sender: FDA-Public Use
  Company Number: CN-009507513-1405CHN009829

PATIENT
  Age: 88 Year
  Sex: Female

DRUGS (2)
  1. IMIPENEM (+) CILASTATIN SODIUM [Suspect]
     Indication: LUNG INFECTION
     Dosage: 0.5 G, Q8H, IV GTT
     Route: 042
     Dates: start: 20080602, end: 2008
  2. AZITHROMYCIN [Suspect]
     Dosage: 0.5 G, QD
     Route: 042

REACTIONS (4)
  - Epilepsy [Recovered/Resolved]
  - Convulsion [Recovered/Resolved]
  - Convulsion [Recovered/Resolved]
  - Convulsion [Recovered/Resolved]
